FAERS Safety Report 5488392-6 (Version None)
Quarter: 2007Q4

REPORT INFORMATION
  Report Type: 
  Country: None (occurrence: None)
  Receive Date: 20071017
  Receipt Date: 20071008
  Transmission Date: 20080405
  Serious: Yes (Death, Life-Threatening, Hospitalization)
  Sender: FDA-Public Use
  Company Number: BG-JNJFOC-20071002246

PATIENT
  Age: 56 Year
  Sex: Male

DRUGS (2)
  1. REMICADE [Suspect]
     Dosage: INFUSIONS TO BE GIVEN AT 0, 2, AND 6 WEEKS-THEN EVERY 8 WEEKS THEREAFTER
     Route: 042
  2. REMICADE [Suspect]
     Indication: CROHN'S DISEASE
     Dosage: 3 INFUSIONS ON UNKNOWN DATES.
     Route: 042

REACTIONS (5)
  - CARDIAC FAILURE [None]
  - DEATH [None]
  - GENERALISED OEDEMA [None]
  - LOBAR PNEUMONIA [None]
  - RESPIRATORY FAILURE [None]
